FAERS Safety Report 11664921 (Version 1)
Quarter: 2015Q4

REPORT INFORMATION
  Report Type: Spontaneous
  Country: CA (occurrence: CA)
  Receive Date: 20151027
  Receipt Date: 20151027
  Transmission Date: 20160304
  Serious: Yes (Hospitalization, Other)
  Sender: FDA-Public Use
  Company Number: CA-ASTELLAS-2015US039053

PATIENT
  Age: 15 Year

DRUGS (1)
  1. PROGRAF [Suspect]
     Active Substance: TACROLIMUS\TACROLIMUS ANHYDROUS
     Indication: HEART TRANSPLANT
     Route: 048
     Dates: start: 200010

REACTIONS (5)
  - Lymphoma [Recovered/Resolved]
  - Immune thrombocytopenic purpura [Unknown]
  - Contusion [Unknown]
  - Lymphoma [Recovered/Resolved]
  - Platelet count decreased [Unknown]

NARRATIVE: CASE EVENT DATE: 2006
